FAERS Safety Report 8046406-3 (Version None)
Quarter: 2012Q1

REPORT INFORMATION
  Report Type: 
  Country: None (occurrence: None)
  Receive Date: 20120113
  Receipt Date: 20120104
  Transmission Date: 20120608
  Serious: Yes (Other)
  Sender: FDA-Public Use
  Company Number: SE-ASTRAZENECA-2012SE01686

PATIENT
  Age: 59 Year
  Sex: Male

DRUGS (3)
  1. ATENOLOL [Suspect]
     Route: 048
  2. DILTIAZEM HCL [Suspect]
     Indication: ANGINA PECTORIS
     Route: 065
  3. DILTIAZEM HCL [Suspect]
     Route: 065

REACTIONS (2)
  - BRADYCARDIA [None]
  - SHOCK [None]
